FAERS Safety Report 8840379 (Version 2)
Quarter: 2012Q4

REPORT INFORMATION
  Report Type: 
  Country: US (occurrence: US)
  Receive Date: 20121015
  Receipt Date: 20121029
  Transmission Date: 20130627
  Serious: No
  Sender: FDA-Public Use
  Company Number: US-VERTEX PHARMACEUTICAL INC.-2012-022103

PATIENT
  Age: 59 Year
  Sex: Male

DRUGS (13)
  1. VX-950 [Suspect]
     Indication: HEPATITIS C
     Dosage: 750 mg, tid
     Route: 048
     Dates: start: 20120921
  2. PEGASYS PROCLICK MONTHLY [Concomitant]
     Indication: HEPATITIS C
     Dosage: 180mcg/0.5ml
     Dates: start: 20120921
  3. RIBAVIRIN [Concomitant]
     Indication: HEPATITIS C
     Dosage: UNK
     Dates: start: 20120921
  4. PROPRANOLOL [Concomitant]
     Dosage: 20 mg, UNK
  5. ASPIRIN BAYER [Concomitant]
     Dosage: 81 mg, UNK
  6. CYMBALTA [Concomitant]
     Dosage: 60 mg, UNK
  7. VITAMIN B-12 [Concomitant]
     Dosage: 1000 CR
  8. OMEPRAZOLE [Concomitant]
     Dosage: 20 mg, UNK
  9. LISINOPRIL [Concomitant]
     Dosage: 20 mg, UNK
  10. HUMALOG [Concomitant]
     Dosage: 100/ML
  11. LANTUS [Concomitant]
     Dosage: 100/ml
  12. VITAMIN D /00107901/ [Concomitant]
     Dosage: 400 UNK, UNK
  13. VICTRELIS [Concomitant]
     Dosage: 800 mg, tid

REACTIONS (2)
  - Insomnia [Unknown]
  - Rash [Recovered/Resolved]
